FAERS Safety Report 10213139 (Version 1)
Quarter: 2014Q2

REPORT INFORMATION
  Report Type: Report from Study
  Country: US (occurrence: US)
  Receive Date: 20140603
  Receipt Date: 20140603
  Transmission Date: 20141212
  Serious: Yes (Other)
  Sender: FDA-Public Use
  Company Number: US-ROCHE-1412229

PATIENT
  Age: 87 Year
  Sex: Female
  Weight: 97.61 kg

DRUGS (1)
  1. KADCYLA [Suspect]
     Indication: INFLAMMATORY CARCINOMA OF THE BREAST
     Route: 042
     Dates: start: 20131011, end: 20131012

REACTIONS (1)
  - Mental status changes [Recovered/Resolved]
